FAERS Safety Report 18203651 (Version 1)
Quarter: 2020Q3

REPORT INFORMATION
  Report Type: Spontaneous
  Country: DE (occurrence: DE)
  Receive Date: 20200827
  Receipt Date: 20200827
  Transmission Date: 20201103
  Serious: Yes (Hospitalization, Other)
  Sender: FDA-Public Use
  Company Number: DE-BAYER-2020-172571

PATIENT
  Age: 20 Year
  Sex: Female

DRUGS (2)
  1. GADOVIST [Suspect]
     Active Substance: GADOBUTROL
     Indication: MAGNETIC RESONANCE IMAGING JOINT
     Dosage: 0.1 ML/KG BODY WEIGHT, ONCE
     Route: 042
  2. GADOVIST [Suspect]
     Active Substance: GADOBUTROL
     Indication: ARTHRALGIA

REACTIONS (5)
  - Acute respiratory distress syndrome [Recovered/Resolved]
  - Disorientation [Recovered/Resolved]
  - Circulatory collapse [Recovered/Resolved]
  - Sputum abnormal [Recovered/Resolved]
  - Hypotonia [Recovered/Resolved]
